FAERS Safety Report 9140565 (Version 2)
Quarter: 2013Q1

REPORT INFORMATION
  Report Type: Spontaneous
  Country: US (occurrence: US)
  Receive Date: 20130305
  Receipt Date: 20130326
  Transmission Date: 20140127
  Serious: No
  Sender: FDA-Public Use
  Company Number: US-B.I. PHARMACEUTICALS,INC./RIDGEFIELD-2013-BI-05325BP

PATIENT
  Age: 61 None
  Sex: Female
  Weight: 82 kg

DRUGS (1)
  1. SPIRIVA [Suspect]
     Indication: EMPHYSEMA
     Dosage: 18 MCG
     Route: 055
     Dates: start: 2010

REACTIONS (4)
  - Headache [Recovered/Resolved]
  - Pulmonary function test decreased [Unknown]
  - Drug ineffective [Recovered/Resolved]
  - Product quality issue [Recovered/Resolved]
